FAERS Safety Report 15470601 (Version 1)
Quarter: 2018Q4

REPORT INFORMATION
  Report Type: Spontaneous
  Country: ES (occurrence: ES)
  Receive Date: 20181005
  Receipt Date: 20181005
  Transmission Date: 20190205
  Serious: Yes (Other)
  Sender: FDA-Public Use
  Company Number: ES-INCYTE CORPORATION-2018IN009955

PATIENT

DRUGS (1)
  1. JAKAVI [Suspect]
     Active Substance: RUXOLITINIB
     Indication: MYELOFIBROSIS
     Dosage: 35 MG, QD
     Route: 048
     Dates: start: 20170224

REACTIONS (3)
  - Skin cancer [Not Recovered/Not Resolved]
  - Nodule [Unknown]
  - Skin ulcer [Unknown]

NARRATIVE: CASE EVENT DATE: 201802
